FAERS Safety Report 4345745-7 (Version None)
Quarter: 2004Q2

REPORT INFORMATION
  Report Type: 
  Country: None (occurrence: None)
  Receive Date: 20040421
  Receipt Date: 20040405
  Transmission Date: 20050107
  Serious: Yes (Hospitalization)
  Sender: FDA-Public Use
  Company Number: 205940

PATIENT
  Age: 28 Year
  Sex: Female

DRUGS (3)
  1. HERCEPTIN [Suspect]
     Indication: BREAST CANCER
     Dosage: SEE IMAGE
     Route: 042
     Dates: start: 20040301, end: 20040301
  2. DOCETAXEL (DOCETAXEL) [Suspect]
     Indication: BREAST CANCER
     Dosage: 75 MG/M2, Q3W, INTRAVENOUS
     Route: 042
     Dates: start: 20040302, end: 20040302
  3. CARBOPLATIN [Suspect]
     Indication: BREAST CANCER
     Dosage: 6 AUC, Q3W, INTRAVENOUS
     Route: 042
     Dates: start: 20040303, end: 20040302

REACTIONS (1)
  - FEBRILE NEUTROPENIA [None]
